FAERS Safety Report 13483723 (Version 1)
Quarter: 2017Q2

REPORT INFORMATION
  Report Type: Spontaneous
  Country: US (occurrence: US)
  Receive Date: 20170424
  Receipt Date: 20170424
  Transmission Date: 20170830
  Serious: No
  Sender: FDA-Public Use
  Company Number: US-JNJFOC-20170416414

PATIENT
  Age: 59 Year
  Sex: Female
  Weight: 113.4 kg

DRUGS (2)
  1. ZYRTEC 10MG IR TABLET [Suspect]
     Active Substance: CETIRIZINE HYDROCHLORIDE
     Route: 048
  2. ZYRTEC 10MG IR TABLET [Suspect]
     Active Substance: CETIRIZINE HYDROCHLORIDE
     Indication: MULTIPLE ALLERGIES
     Dosage: WHEN NEEDED
     Route: 048

REACTIONS (3)
  - Product package associated injury [Unknown]
  - Pain in extremity [Recovered/Resolved]
  - Product closure removal difficult [Unknown]
